FAERS Safety Report 7381574-8 (Version None)
Quarter: 2011Q1

REPORT INFORMATION
  Report Type: 
  Country: None (occurrence: None)
  Receive Date: 20110329
  Receipt Date: 20110323
  Transmission Date: 20110831
  Serious: Yes (Hospitalization)
  Sender: FDA-Public Use
  Company Number: CA-BRISTOL-MYERS SQUIBB COMPANY-14952444

PATIENT
  Age: 82 Year
  Sex: Female

DRUGS (15)
  1. ACETYLSALICYLIC ACID [Concomitant]
  2. SOFLAX [Concomitant]
  3. FERROUS GLUCONATE [Concomitant]
  4. ORENCIA [Suspect]
     Indication: RHEUMATOID ARTHRITIS
     Dosage: NO OF INFUSON:15,LAST INFUSION ON 26-JAN-2010 THERAPY DATES:28DEC09,19AUG10,03MAR2011
     Route: 042
     Dates: start: 20091228
  5. FOLIC ACID [Concomitant]
  6. COZAAR [Concomitant]
  7. METHOTREXATE [Concomitant]
  8. ELTROXIN [Concomitant]
  9. VITAMIN D [Concomitant]
  10. HYDROXYCHLOROQUINE SULFATE [Concomitant]
  11. FUROSEMIDE [Concomitant]
  12. NORVASC [Concomitant]
  13. ASCORBIC ACID [Concomitant]
  14. LIPITOR [Concomitant]
  15. NEXIUM [Concomitant]

REACTIONS (2)
  - PULMONARY OEDEMA [None]
  - PNEUMONIA [None]
